FAERS Safety Report 6271407-5 (Version None)
Quarter: 2009Q3

REPORT INFORMATION
  Report Type: 
  Country: None (occurrence: None)
  Receive Date: 20090717
  Receipt Date: 20090707
  Transmission Date: 20100115
  Serious: Yes (Hospitalization)
  Sender: FDA-Public Use
  Company Number: FR-ROCHE-642493

PATIENT
  Age: 55 Year
  Sex: Male

DRUGS (2)
  1. PEGASYS [Suspect]
     Route: 042
     Dates: start: 20080121, end: 20080228
  2. COPEGUS [Suspect]
     Route: 048
     Dates: start: 20080121, end: 20080411

REACTIONS (3)
  - DEPRESSION [None]
  - POLYNEUROPATHY [None]
  - THROMBOCYTOPENIA [None]
